FAERS Safety Report 6666175-9 (Version None)
Quarter: 2010Q2

REPORT INFORMATION
  Report Type: 
  Country: None (occurrence: None)
  Receive Date: 20100402
  Receipt Date: 20100324
  Transmission Date: 20101027
  Serious: Yes (Hospitalization, Other)
  Sender: FDA-Public Use
  Company Number: US-AMGEN-KDC402187

PATIENT
  Sex: Female
  Weight: 72.6 kg

DRUGS (18)
  1. ENBREL [Suspect]
     Indication: PSORIASIS
     Dates: start: 20080208, end: 20081111
  2. VITAMIN TAB [Concomitant]
     Route: 048
     Dates: start: 20080208, end: 20080504
  3. MULTI-VITAMINS [Concomitant]
     Route: 048
     Dates: start: 20080505, end: 20081111
  4. VITAMIN B6 [Concomitant]
     Route: 048
     Dates: start: 20080208, end: 20081111
  5. OXYCODONE [Concomitant]
     Route: 048
     Dates: start: 20080208, end: 20081111
  6. BUSPAR [Concomitant]
     Route: 048
     Dates: start: 20080208, end: 20081111
  7. AMBIEN [Concomitant]
     Route: 048
     Dates: start: 20080208, end: 20081111
  8. NEXIUM [Concomitant]
     Route: 048
     Dates: start: 20080816, end: 20081111
  9. PRILOSEC [Concomitant]
     Route: 048
     Dates: start: 20080208, end: 20080816
  10. PEPCID [Concomitant]
     Route: 048
     Dates: start: 20080520, end: 20080820
  11. BENADRYL [Concomitant]
     Route: 048
     Dates: start: 20080208, end: 20081111
  12. TYLENOL-500 [Concomitant]
     Route: 048
     Dates: start: 20080208, end: 20081111
  13. FISH OIL [Concomitant]
     Route: 048
     Dates: start: 20080901, end: 20081111
  14. GLYBURIDE [Concomitant]
     Route: 048
     Dates: start: 20081028, end: 20081111
  15. REGLAN [Concomitant]
     Route: 048
     Dates: start: 20080911, end: 20081111
  16. TRICOR [Concomitant]
     Route: 048
     Dates: start: 20080208, end: 20080308
  17. LORAZEPAM [Concomitant]
     Route: 048
     Dates: start: 20080911, end: 20081111
  18. WELLBUTRIN [Concomitant]
     Route: 048
     Dates: start: 20080911, end: 20081111

REACTIONS (2)
  - DEHYDRATION [None]
  - PREMATURE LABOUR [None]
